FAERS Safety Report 4413942-8 (Version None)
Quarter: 2004Q3

REPORT INFORMATION
  Report Type: 
  Country: None (occurrence: None)
  Receive Date: 20040803
  Receipt Date: 20040723
  Transmission Date: 20050211
  Serious: Yes (Hospitalization)
  Sender: FDA-Public Use
  Company Number: US-ROCHE-375566

PATIENT
  Age: 49 Year
  Sex: Female

DRUGS (2)
  1. PEGASYS [Suspect]
     Route: 058
     Dates: start: 20030315, end: 20030915
  2. COPEGUS [Suspect]
     Dosage: 3AM AND 3PM
     Route: 048
     Dates: start: 20030315, end: 20030915

REACTIONS (17)
  - ABDOMINAL PAIN [None]
  - ANAEMIA [None]
  - ARTHRALGIA [None]
  - COLONIC POLYP [None]
  - DECREASED APPETITE [None]
  - DIARRHOEA [None]
  - GASTROENTERITIS [None]
  - GASTROENTERITIS VIRAL [None]
  - HAEMATEMESIS [None]
  - HAEMATOCHEZIA [None]
  - HAEMOGLOBIN DECREASED [None]
  - HYPOTENSION [None]
  - MEMORY IMPAIRMENT [None]
  - NAUSEA [None]
  - OESOPHAGITIS [None]
  - VISION BLURRED [None]
  - VISUAL ACUITY REDUCED [None]
